FAERS Safety Report 19509104 (Version 1)
Quarter: 2021Q3

REPORT INFORMATION
  Report Type: Spontaneous
  Country: US (occurrence: US)
  Receive Date: 20210709
  Receipt Date: 20210709
  Transmission Date: 20211014
  Serious: No
  Sender: FDA-Public Use
  Company Number: US-SA-2021SA224215

PATIENT
  Sex: Female

DRUGS (1)
  1. DUPIXENT [Suspect]
     Active Substance: DUPILUMAB
     Indication: NASAL POLYPS
     Dosage: UNK
     Dates: start: 20210701

REACTIONS (10)
  - Constipation [Unknown]
  - Condition aggravated [Unknown]
  - Condition aggravated [Unknown]
  - Pain in jaw [Unknown]
  - Injection site urticaria [Recovered/Resolved]
  - Nasal polyps [Unknown]
  - Insomnia [Unknown]
  - Rhinorrhoea [Unknown]
  - Sinus disorder [Unknown]
  - Tooth disorder [Unknown]

NARRATIVE: CASE EVENT DATE: 202107
